FAERS Safety Report 5515817-X (Version None)
Quarter: 2007Q4

REPORT INFORMATION
  Report Type: 
  Country: None (occurrence: None)
  Receive Date: 20071114
  Receipt Date: 20071108
  Transmission Date: 20080405
  Serious: Yes (Other)
  Sender: FDA-Public Use
  Company Number: AE-NOVOPROD-268108

PATIENT
  Sex: Male
  Weight: 100 kg

DRUGS (3)
  1. LEVEMIR [Suspect]
     Indication: INSULIN-REQUIRING TYPE II DIABETES MELLITUS
     Dosage: 20 IU, QD
     Route: 058
  2. METFORMIN HCL [Concomitant]
     Dosage: 1700 MG, UNK
     Route: 048
     Dates: start: 20040101
  3. CORTISONE ACETATE TAB [Concomitant]
     Dosage: LOCAL INJECTIONS THREE TIMES PER YEAR

REACTIONS (4)
  - HYPERSENSITIVITY [None]
  - INJECTION SITE INDURATION [None]
  - INJECTION SITE PRURITUS [None]
  - INJECTION SITE RASH [None]
